FAERS Safety Report 5013872-7 (Version None)
Quarter: 2006Q2

REPORT INFORMATION
  Report Type: 
  Country: None (occurrence: None)
  Receive Date: 20060526
  Receipt Date: 20060526
  Transmission Date: 20061013
  Serious: Yes (Hospitalization)
  Sender: FDA-Public Use
  Company Number: None

PATIENT
  Age: 59 Year
  Sex: Male
  Weight: 97.0698 kg

DRUGS (12)
  1. IRESSA [Suspect]
     Indication: OESOPHAGEAL CARCINOMA
     Dosage: 250 MG QD
     Dates: start: 20060508, end: 20060524
  2. CISPLATIN [Suspect]
     Indication: OESOPHAGEAL CARCINOMA
     Dosage: 75MG/M2
     Dates: start: 20060522
  3. FLUOROURACIL [Suspect]
     Indication: OESOPHAGEAL CARCINOMA
     Dosage: 1000MG/M2
     Dates: start: 20060522
  4. RADIATION TX [Suspect]
     Indication: OESOPHAGEAL CARCINOMA
     Dosage: 1.8GY
     Dates: start: 20060522
  5. ATENOLOL [Concomitant]
  6. TRIAMTERENE AND HYDROCHLOROTHIAZIDE [Concomitant]
  7. UNIVASC [Concomitant]
  8. ANDROGEL [Concomitant]
  9. PRILOSEC [Concomitant]
  10. AUGMENTIN '125' [Concomitant]
  11. TYLENOL (CAPLET) [Concomitant]
  12. IMMODIUM AND COMPAZINE [Concomitant]

REACTIONS (1)
  - CHEST PAIN [None]
